FAERS Safety Report 7400681-4 (Version None)
Quarter: 2011Q2

REPORT INFORMATION
  Report Type: 
  Country: None (occurrence: None)
  Receive Date: 20110407
  Receipt Date: 20110401
  Transmission Date: 20111010
  Serious: Yes (Hospitalization)
  Sender: FDA-Public Use
  Company Number: A0875653A

PATIENT
  Age: 60 Year
  Sex: Female
  Weight: 87.3 kg

DRUGS (11)
  1. AVANDIA [Suspect]
     Indication: DIABETES MELLITUS
     Route: 048
     Dates: start: 20030601, end: 20100101
  2. TRIAMTERENE AND HYDROCHLOROTHIAZIDE [Concomitant]
  3. GABAPENTIN [Concomitant]
  4. DARVOCET-N 50 [Concomitant]
  5. PAXIL [Concomitant]
  6. ZOCOR [Concomitant]
  7. MICRONASE [Concomitant]
  8. LOTENSIN [Concomitant]
  9. PLAVIX [Concomitant]
  10. ASPIRIN [Concomitant]
  11. LEVOTHYROXINE [Concomitant]

REACTIONS (1)
  - CEREBROVASCULAR ACCIDENT [None]
